FAERS Safety Report 4745000-7 (Version None)
Quarter: 2005Q3

REPORT INFORMATION
  Report Type: 
  Country: None (occurrence: None)
  Receive Date: 20050811
  Receipt Date: 20050802
  Transmission Date: 20060218
  Serious: Yes (Other)
  Sender: FDA-Public Use
  Company Number: 2005103722

PATIENT
  Age: 80 Year
  Sex: Female

DRUGS (3)
  1. NORVASC [Suspect]
     Indication: HYPERTENSION
     Dosage: ORAL
     Route: 048
     Dates: start: 20050701, end: 20050701
  2. TYLENOL [Suspect]
     Indication: ILL-DEFINED DISORDER
  3. ZELNORM [Concomitant]

REACTIONS (2)
  - BLINDNESS UNILATERAL [None]
  - OCULAR HYPERAEMIA [None]
